FAERS Safety Report 21250036 (Version 1)
Quarter: 2022Q3

REPORT INFORMATION
  Report Type: Spontaneous
  Country: ES (occurrence: ES)
  Receive Date: 20220824
  Receipt Date: 20220824
  Transmission Date: 20221026
  Serious: Yes (Other)
  Sender: FDA-Public Use
  Company Number: None

PATIENT
  Sex: Female
  Weight: 50 kg

DRUGS (1)
  1. PYLERA [Suspect]
     Active Substance: BISMUTH SUBCITRATE POTASSIUM\METRONIDAZOLE\TETRACYCLINE HYDROCHLORIDE
     Indication: Helicobacter infection
     Dosage: 4 PILLS AT EACH MEAL (4 P?LDORAS EN CADA COMIDA)
     Route: 048
     Dates: start: 20210304, end: 20210318

REACTIONS (3)
  - Lactose tolerance test abnormal [Not Recovered/Not Resolved]
  - Diarrhoea [Not Recovered/Not Resolved]
  - Overgrowth bacterial [Not Recovered/Not Resolved]

NARRATIVE: CASE EVENT DATE: 20210320
